FAERS Safety Report 9471070 (Version 1)
Quarter: 2013Q3

REPORT INFORMATION
  Report Type: Spontaneous
  Country: US (occurrence: US)
  Receive Date: 20130822
  Receipt Date: 20130822
  Transmission Date: 20140515
  Serious: Yes (Other)
  Sender: FDA-Public Use
  Company Number: US-PFIZER INC-2013239010

PATIENT
  Age: 46 Year
  Sex: Female
  Weight: 72.56 kg

DRUGS (2)
  1. AZITHROMYCIN [Suspect]
     Indication: UPPER RESPIRATORY TRACT INFECTION
     Dosage: 250 MG, 1X/DAY
     Dates: start: 20130811, end: 20130815
  2. CLARITIN-D [Concomitant]
     Indication: HYPERSENSITIVITY
     Dosage: UNK

REACTIONS (3)
  - Coeliac disease [Recovering/Resolving]
  - Dermatitis [Recovering/Resolving]
  - Nausea [Recovered/Resolved]
